FAERS Safety Report 6639757-8 (Version None)
Quarter: 2010Q1

REPORT INFORMATION
  Report Type: 
  Country: None (occurrence: None)
  Receive Date: 20100318
  Receipt Date: 20100310
  Transmission Date: 20100710
  Serious: Yes (Hospitalization)
  Sender: FDA-Public Use
  Company Number: PHHO2010CZ03241

PATIENT
  Sex: Male
  Weight: 89 kg

DRUGS (13)
  1. ALISKIREN [Suspect]
     Indication: CARDIAC FAILURE
     Dosage: 150MG
     Route: 048
     Dates: start: 20100219, end: 20100303
  2. ALISKIREN [Suspect]
     Dosage: NO TREATMENT
     Dates: start: 20100304, end: 20100308
  3. ALISKIREN [Suspect]
     Dosage: 150MG
     Route: 048
     Dates: start: 20100309
  4. COMPARATOR ENALAPRIL [Suspect]
     Indication: CARDIAC FAILURE
     Route: 048
  5. COMPARATOR ENALAPRIL [Suspect]
     Dosage: 20MG
     Route: 048
     Dates: start: 20100219, end: 20100303
  6. COMPARATOR ENALAPRIL [Suspect]
     Dosage: NO TREATMENT
     Dates: start: 20100304, end: 20100308
  7. COMPARATOR ENALAPRIL [Suspect]
     Dosage: 20MG
     Route: 048
     Dates: start: 20100309
  8. BLINDED ALISKIREN ALI+TAB+CF [Suspect]
     Indication: CARDIAC FAILURE
     Dosage: NO TREATMENT
  9. BLINDED ENALAPRIL COMP-ENA+ [Suspect]
     Indication: CARDIAC FAILURE
     Dosage: NO TREATMENT
  10. BLINDED NO TREATMENT RECEIVED NOMED [Suspect]
     Indication: CARDIAC FAILURE
     Dosage: NO TREATMENT
  11. ATORVASTATIN CALCIUM [Concomitant]
  12. BISOPROLOL [Concomitant]
  13. SEDACORON [Concomitant]

REACTIONS (2)
  - DRUG INEFFECTIVE [None]
  - PULMONARY OEDEMA [None]
